FAERS Safety Report 9314244 (Version 2)
Quarter: 2013Q2

REPORT INFORMATION
  Report Type: Report from Study
  Country: BR (occurrence: BR)
  Receive Date: 20130529
  Receipt Date: 20130620
  Transmission Date: 20140414
  Serious: Yes (Other)
  Sender: FDA-Public Use
  Company Number: PHHY2013BR051720

PATIENT
  Sex: Male

DRUGS (2)
  1. DIOVAN [Suspect]
     Indication: BLOOD PRESSURE
     Dosage: 320 MG, ONCE A DAY
     Route: 048
     Dates: start: 1996
  2. SERTRALINE HYDROCHLORIDE [Concomitant]
     Dosage: 1 DF (50 MG) PER DAY
     Route: 048

REACTIONS (3)
  - Dementia Alzheimer^s type [Recovering/Resolving]
  - Vascular dementia [Recovering/Resolving]
  - Senile dementia [Recovering/Resolving]
